FAERS Safety Report 8848626 (Version 2)
Quarter: 2012Q4

REPORT INFORMATION
  Report Type: Report from Study
  Country: JP (occurrence: JP)
  Receive Date: 20121018
  Receipt Date: 20121116
  Transmission Date: 20130627
  Serious: Yes (Other)
  Sender: FDA-Public Use
  Company Number: JP-ROCHE-1146065

PATIENT
  Age: 71 Year
  Sex: Male
  Weight: 60 kg

DRUGS (21)
  1. METHOXY POLYETHYLENE GLYCOL-EPOETIN BETA [Suspect]
     Indication: NEPHROGENIC ANAEMIA
     Route: 042
     Dates: start: 20111128, end: 20120624
  2. METHOXY POLYETHYLENE GLYCOL-EPOETIN BETA [Suspect]
     Indication: NEPHROGENIC ANAEMIA
     Route: 042
     Dates: start: 20120625, end: 20120920
  3. CALCIUM CARBONATE [Concomitant]
     Indication: DIABETIC NEPHROPATHY
     Route: 048
  4. PLETAAL [Concomitant]
     Route: 048
  5. ALLOPURINOL [Concomitant]
     Indication: DIABETIC NEPHROPATHY
     Route: 048
  6. CLARITIN REDITABS [Concomitant]
     Route: 048
  7. LASIX [Concomitant]
     Indication: DIABETIC NEPHROPATHY
     Route: 048
  8. REMITCH [Concomitant]
     Route: 048
  9. MICARDIS [Concomitant]
     Indication: DIABETIC NEPHROPATHY
     Route: 048
  10. LAC-B [Concomitant]
     Route: 048
     Dates: start: 20110808
  11. KARY UNI [Concomitant]
     Route: 047
  12. FESIN [Concomitant]
     Indication: DIABETIC NEPHROPATHY
     Dosage: Once a week (Up to five times).
     Route: 042
     Dates: start: 20111107, end: 20111205
  13. FESIN [Concomitant]
     Dosage: Once a week (Up to five times).
     Route: 042
     Dates: start: 20120713, end: 20120810
  14. INNOLET 30R [Concomitant]
     Indication: DIABETIC NEPHROPATHY
     Dosage: 14-0-8
     Route: 023
  15. OXAROL [Concomitant]
     Indication: DIABETIC NEPHROPATHY
     Route: 042
     Dates: end: 20120518
  16. OXAROL [Concomitant]
     Indication: DIABETIC NEPHROPATHY
     Route: 042
     Dates: start: 20120521, end: 20120711
  17. OXAROL [Concomitant]
     Indication: DIABETIC NEPHROPATHY
     Route: 042
     Dates: start: 20120713, end: 20120810
  18. OXAROL [Concomitant]
     Indication: DIABETIC NEPHROPATHY
     Route: 042
     Dates: start: 20120813
  19. CERCINE [Concomitant]
     Route: 048
  20. VOLTAREN [Concomitant]
     Dosage: Whole body
     Route: 061
  21. LEVOFLOXACIN HYDRATE [Concomitant]
     Route: 048
     Dates: start: 20120516, end: 20120519

REACTIONS (2)
  - Haemoglobin decreased [Recovered/Resolved]
  - Enteritis infectious [Recovering/Resolving]
